FAERS Safety Report 6613089-6 (Version None)
Quarter: 2010Q1

REPORT INFORMATION
  Report Type: 
  Country: None (occurrence: None)
  Receive Date: 20100223
  Receipt Date: 20100210
  Transmission Date: 20100710
  Serious: Yes (Hospitalization)
  Sender: FDA-Public Use
  Company Number: 1000011452

PATIENT
  Age: 39 Year
  Sex: Male

DRUGS (5)
  1. ESCITALOPRAM (ESCITALOPRAM OXALATE) (TALETS) [Suspect]
     Dosage: 420 MG (420 MG, ONCE), ORAL, 10 MG (10 MG, 1 IN 1 D), ORAL
     Route: 048
     Dates: start: 20091118, end: 20091118
  2. MEPRONIZINE [Suspect]
     Dosage: 12 GM (12 GM, ONCE), ORAL, 1 DOSAGE FORMS (1 DOSAGE FORMS, 1 IN 1 D), ORAL
     Route: 048
     Dates: start: 20091118, end: 20091118
  3. ZOLPIDEM [Suspect]
     Dosage: 840 MG (840 MG, ONCE), ORAL, 10 MG (10 MG, 1 IN 1 D), ORAL
     Route: 048
     Dates: start: 20091118, end: 20091118
  4. BROMAZEPAM [Suspect]
     Dosage: 540 MG (540 MG, ONCE), ORAL, 3 MG (3 MG, 1 IN 1 D),ORAL
     Route: 048
     Dates: start: 20091118, end: 20091118
  5. NORSET [Suspect]
     Dosage: 730 MG (730 MG, ONCE), ORAL, 15 MG (15 MG, 1 IN 1 D), ORAL
     Route: 048
     Dates: start: 20091118, end: 20091118

REACTIONS (10)
  - CARDIOGENIC SHOCK [None]
  - COMA [None]
  - DISTURBANCE IN ATTENTION [None]
  - ELECTROENCEPHALOGRAM ABNORMAL [None]
  - INTENTIONAL OVERDOSE [None]
  - LACTIC ACIDOSIS [None]
  - RENAL FAILURE ACUTE [None]
  - SUICIDE ATTEMPT [None]
  - TACHYCARDIA [None]
  - VENTRICULAR HYPOKINESIA [None]
